FAERS Safety Report 22881874 (Version 4)
Quarter: 2024Q2

REPORT INFORMATION
  Report Type: Report from Study
  Country: US (occurrence: US)
  Receive Date: 20230830
  Receipt Date: 20240522
  Transmission Date: 20240716
  Serious: Yes (Death, Life-Threatening)
  Sender: FDA-Public Use
  Company Number: US-002147023-NVSC2023US187176

PATIENT
  Age: 60 Year
  Sex: Female

DRUGS (2)
  1. PIQRAY [Suspect]
     Active Substance: ALPELISIB
     Indication: Product used for unknown indication
     Dosage: 200 MG, BID
     Route: 048
     Dates: start: 20200423, end: 20200623
  2. PIQRAY [Suspect]
     Active Substance: ALPELISIB
     Dosage: 50 MG
     Route: 065

REACTIONS (3)
  - Wound [Fatal]
  - Erythema nodosum [Fatal]
  - Diabetes mellitus [Fatal]

NARRATIVE: CASE EVENT DATE: 20200423
